FAERS Safety Report 8848851 (Version 1)
Quarter: 2012Q4

REPORT INFORMATION
  Report Type: Spontaneous
  Country: US (occurrence: None)
  Receive Date: 20121017
  Receipt Date: 20121017
  Transmission Date: 20130627
  Serious: Yes (Other)
  Sender: FDA-Public Use
  Company Number: None

PATIENT
  Age: 35 Year
  Sex: Female
  Weight: 83.92 kg

DRUGS (1)
  1. REMICADE [Suspect]
     Indication: CROHN^S
     Route: 041
     Dates: start: 20110620, end: 20120325

REACTIONS (1)
  - Lupus-like syndrome [None]
